FAERS Safety Report 6657791-9 (Version None)
Quarter: 2010Q1

REPORT INFORMATION
  Report Type: 
  Country: None (occurrence: None)
  Receive Date: 20100330
  Receipt Date: 20100326
  Transmission Date: 20100710
  Serious: Yes (Hospitalization, Other)
  Sender: FDA-Public Use
  Company Number: AU-ROCHE-685822

PATIENT
  Sex: Female
  Weight: 102 kg

DRUGS (11)
  1. BLINDED TOCILIZUMAB [Suspect]
     Indication: RHEUMATOID ARTHRITIS
     Dosage: DOSAGE FORM INFUSION, LAST DOSE PRIOR TO SAE ON 11 FEB 2010. PERMANENTLY DISCONTINUED.
     Route: 042
     Dates: start: 20050513, end: 20100326
  2. METHOTREXATE [Concomitant]
     Dosage: TDD: 10 MG WEEKLY
     Dates: start: 20070513
  3. FOLIC ACID [Concomitant]
     Dates: start: 19991101
  4. PREDNISOLONE [Concomitant]
     Dates: start: 20080731
  5. OMEPRAZOLE [Concomitant]
     Dates: start: 19980101
  6. AMITRIPTYLINE [Concomitant]
     Dosage: TDD: 10 MG PRN
     Dates: start: 20030801
  7. PARACETAMOL [Concomitant]
     Dosage: 1 GRAM PRN
     Dates: start: 19880101
  8. CALCIUM [Concomitant]
     Dates: start: 19900101
  9. AMLODIPINE BESYLATE [Concomitant]
     Dates: start: 20070328
  10. DICLOFENAC GEL [Concomitant]
     Dosage: TDD: 1 APPLICATION PRN
     Dates: start: 19900101
  11. IBUPRUFEN GEL [Concomitant]
     Dosage: TDD: 1 APPLICATION PRN
     Dates: start: 20050713

REACTIONS (2)
  - FEMUR FRACTURE [None]
  - RENAL DISORDER [None]
